FAERS Safety Report 6288779-8 (Version None)
Quarter: 2009Q3

REPORT INFORMATION
  Report Type: 
  Country: None (occurrence: None)
  Receive Date: 20090729
  Receipt Date: 20090728
  Transmission Date: 20100115
  Serious: Yes (Other)
  Sender: FDA-Public Use
  Company Number: US-BRISTOL-MYERS SQUIBB COMPANY-14718373

PATIENT
  Age: 35 Year
  Sex: Male
  Weight: 104 kg

DRUGS (1)
  1. AVAPRO [Suspect]
     Indication: HYPERTENSION

REACTIONS (3)
  - ARTHRALGIA [None]
  - GAIT DISTURBANCE [None]
  - MUSCLE SPASMS [None]
